FAERS Safety Report 9877320 (Version 1)
Quarter: 2014Q1

REPORT INFORMATION
  Report Type: Spontaneous
  Country: CA (occurrence: CA)
  Receive Date: 20140206
  Receipt Date: 20140206
  Transmission Date: 20141002
  Serious: Yes (Other)
  Sender: FDA-Public Use
  Company Number: CA-ASTELLAS-2014US001089

PATIENT
  Sex: Male

DRUGS (1)
  1. XTANDI [Suspect]
     Indication: NEOPLASM MALIGNANT
     Dosage: 160 MG, UNKNOWN/D
     Route: 048

REACTIONS (2)
  - Gait disturbance [Unknown]
  - Back pain [Unknown]
